FAERS Safety Report 7202862-1 (Version None)
Quarter: 2010Q4

REPORT INFORMATION
  Report Type: 
  Country: None (occurrence: None)
  Receive Date: 20101229
  Receipt Date: 20101220
  Transmission Date: 20110411
  Serious: Yes (Hospitalization, Other)
  Sender: FDA-Public Use
  Company Number: US-TEVA-260508USA

PATIENT
  Age: 20 Year
  Sex: Female

DRUGS (3)
  1. ALBUTEROL SULFATE W/IPRATROPIUM BROMIDE INHALATION SOLUTION, 3 MG (0.0 [Suspect]
  2. METHYLPREDNISOLONE [Concomitant]
  3. LEVOFLOXACIN [Concomitant]

REACTIONS (1)
  - METABOLIC ACIDOSIS [None]
